FAERS Safety Report 5024001-8 (Version None)
Quarter: 2006Q2

REPORT INFORMATION
  Report Type: 
  Country: None (occurrence: None)
  Receive Date: 20060607
  Receipt Date: 20060530
  Transmission Date: 20061013
  Serious: Yes (Other)
  Sender: FDA-Public Use
  Company Number: US-2006-008622

PATIENT
  Age: 71 Year
  Sex: Male
  Weight: 76 kg

DRUGS (11)
  1. CAMPATH [Suspect]
     Indication: CHRONIC LYMPHOCYTIC LEUKAEMIA
     Dosage: SEE IMAGE
     Route: 058
     Dates: start: 20051121, end: 20051121
  2. CAMPATH [Suspect]
     Indication: CHRONIC LYMPHOCYTIC LEUKAEMIA
     Dosage: SEE IMAGE
     Route: 058
     Dates: start: 20051122, end: 20051122
  3. CAMPATH [Suspect]
     Indication: CHRONIC LYMPHOCYTIC LEUKAEMIA
     Dosage: SEE IMAGE
     Route: 058
     Dates: start: 20051123, end: 20060210
  4. BENADRYL ^ACHE^ (AMMONIUM CHLORIDE, DIPHENHYDRAMINE HYDROCHLORIDE, MEN [Concomitant]
  5. MORPHINE [Concomitant]
  6. NEURONTIN [Concomitant]
  7. BACTRIM DS [Concomitant]
  8. ACYCLOVIR [Concomitant]
  9. ZOCOR [Concomitant]
  10. CYMBALTA [Concomitant]
  11. ASPIRIN [Concomitant]

REACTIONS (2)
  - HAEMOLYTIC ANAEMIA [None]
  - UMBILICAL HERNIA [None]
